FAERS Safety Report 5667679-8 (Version None)
Quarter: 2008Q1

REPORT INFORMATION
  Report Type: 
  Country: None (occurrence: None)
  Receive Date: 20080315
  Receipt Date: 20080201
  Transmission Date: 20080703
  Serious: No
  Sender: FDA-Public Use
  Company Number: US-ABBOTT-08P-163-0436344-00

PATIENT
  Sex: Female
  Weight: 57.658 kg

DRUGS (2)
  1. HUMIRA [Suspect]
     Indication: CROHN'S DISEASE
     Route: 058
     Dates: start: 20070724
  2. HUMIRA [Suspect]
     Route: 058
     Dates: start: 20070724, end: 20070901

REACTIONS (2)
  - ACCIDENTAL EXPOSURE [None]
  - DRUG INEFFECTIVE [None]
